FAERS Safety Report 4330965-8 (Version None)
Quarter: 2004Q1

REPORT INFORMATION
  Report Type: 
  Country: None (occurrence: None)
  Receive Date: 20040331
  Receipt Date: 20040324
  Transmission Date: 20041129
  Serious: Yes (Other)
  Sender: FDA-Public Use
  Company Number: 2004202474US

PATIENT
  Age: 67 Year
  Sex: Female
  Weight: 74.8 kg

DRUGS (3)
  1. XALATAN [Suspect]
     Indication: OPEN ANGLE GLAUCOMA
     Dosage: 1 GTT, QD, OPHTHALMIC
     Route: 047
     Dates: start: 19980101
  2. COSOPT [Concomitant]
  3. LIPITOR [Concomitant]

REACTIONS (6)
  - ACCIDENTAL OVERDOSE [None]
  - BURNING SENSATION [None]
  - PEMPHIGOID [None]
  - PHARMACEUTICAL PRODUCT COMPLAINT [None]
  - PRURITUS [None]
  - SCAR [None]
